FAERS Safety Report 11192845 (Version 2)
Quarter: 2015Q3

REPORT INFORMATION
  Report Type: Spontaneous
  Country: US (occurrence: US)
  Receive Date: 20150616
  Receipt Date: 20150928
  Transmission Date: 20151125
  Serious: Yes (Other)
  Sender: FDA-Public Use
  Company Number: US-GILEAD-2015-0158232

PATIENT
  Age: 72 Year
  Sex: Male

DRUGS (1)
  1. RANEXA [Suspect]
     Active Substance: RANOLAZINE
     Indication: CHEST PAIN
     Dosage: 1000 MG, BID
     Route: 065

REACTIONS (3)
  - Drug ineffective for unapproved indication [Unknown]
  - Chest pain [Not Recovered/Not Resolved]
  - Off label use [Unknown]
